FAERS Safety Report 6981912-1 (Version None)
Quarter: 2010Q3

REPORT INFORMATION
  Report Type: 
  Country: None (occurrence: None)
  Receive Date: 20100914
  Receipt Date: 20091103
  Transmission Date: 20110219
  Serious: Yes (Other)
  Sender: FDA-Public Use
  Company Number: US-PFIZER INC-2009294269

PATIENT
  Sex: Male
  Weight: 90.703 kg

DRUGS (3)
  1. LYRICA [Suspect]
     Indication: PAIN IN EXTREMITY
     Dosage: 50 MG, 2X/DAY
     Route: 048
     Dates: start: 20091006, end: 20091017
  2. LYRICA [Suspect]
     Indication: NEURALGIA
  3. FISH OIL [Concomitant]
     Indication: BLOOD TRIGLYCERIDES INCREASED
     Dosage: UNK

REACTIONS (2)
  - CHEST PAIN [None]
  - DYSPNOEA [None]
